FAERS Safety Report 4602862-1 (Version None)
Quarter: 2005Q1

REPORT INFORMATION
  Report Type: 
  Country: None (occurrence: None)
  Receive Date: 20050307
  Receipt Date: 20050224
  Transmission Date: 20050727
  Serious: Yes (Disabling)
  Sender: FDA-Public Use
  Company Number: 200510256GDS

PATIENT
  Sex: Female
  Weight: 62 kg

DRUGS (2)
  1. AVELOX [Suspect]
     Indication: TRACHEOBRONCHITIS
     Dosage: ORAL
     Route: 048
     Dates: start: 20040501
  2. ZITHROMAX [Concomitant]

REACTIONS (6)
  - AGEUSIA [None]
  - ANOSMIA [None]
  - NASAL POLYPS [None]
  - NEURITIS [None]
  - SINUSITIS [None]
  - VIRAL INFECTION [None]
